FAERS Safety Report 8217036-5 (Version None)
Quarter: 2012Q1

REPORT INFORMATION
  Report Type: 
  Country: None (occurrence: None)
  Receive Date: 20120319
  Receipt Date: 20120310
  Transmission Date: 20120608
  Serious: No
  Sender: FDA-Public Use
  Company Number: US-BIOGENIDEC-2011BI026423

PATIENT
  Age: 48 Year
  Sex: Female

DRUGS (1)
  1. TYSABRI [Suspect]
     Indication: MULTIPLE SCLEROSIS
     Route: 042
     Dates: start: 20100401

REACTIONS (4)
  - INTERVERTEBRAL DISC PROTRUSION [None]
  - HYPOAESTHESIA [None]
  - PAIN IN EXTREMITY [None]
  - POOR VENOUS ACCESS [None]
